FAERS Safety Report 21147411 (Version 1)
Quarter: 2022Q3

REPORT INFORMATION
  Report Type: Spontaneous
  Country: DK (occurrence: DK)
  Receive Date: 20220729
  Receipt Date: 20220729
  Transmission Date: 20221027
  Serious: Yes (Other)
  Sender: FDA-Public Use
  Company Number: DK-MYLANLABS-2022M1080372

PATIENT
  Age: 22 Year
  Sex: Female

DRUGS (6)
  1. ETHINYL ESTRADIOL\LEVONORGESTREL [Interacting]
     Active Substance: ETHINYL ESTRADIOL\LEVONORGESTREL
     Indication: Contraception
     Dosage: 1 DOSAGE FORM, QD (150+30 MICROGRAM)
     Route: 048
     Dates: start: 20190321, end: 202103
  2. ASTRAZENECA COVID-19 VACCINE [Interacting]
     Active Substance: AZD-1222
     Indication: COVID-19 immunisation
     Dosage: 1 DOSAGE FORM (DOSE 1)
     Route: 065
     Dates: start: 20210307, end: 20210307
  3. PENICILLIN V POTASSIUM [Concomitant]
     Active Substance: PENICILLIN V POTASSIUM
     Indication: Infection
     Dosage: UNK
     Route: 048
  4. Pinex [Concomitant]
     Indication: Pain
     Dosage: 500 MILLIGRAM
     Route: 048
     Dates: start: 20151106
  5. Pinex [Concomitant]
     Dosage: 3000 MILLIGRAM, QD
     Route: 065
     Dates: start: 20151106
  6. NIX [Concomitant]
     Active Substance: PERMETHRIN
     Indication: Acarodermatitis
     Dosage: UNK
     Route: 003
     Dates: start: 20191217

REACTIONS (2)
  - Deep vein thrombosis [Recovering/Resolving]
  - Drug interaction [Unknown]

NARRATIVE: CASE EVENT DATE: 20210301
